FAERS Safety Report 20020660 (Version 1)
Quarter: 2021Q4

REPORT INFORMATION
  Report Type: Spontaneous
  Country: US (occurrence: US)
  Receive Date: 20211101
  Receipt Date: 20211101
  Transmission Date: 20220303
  Serious: Yes (Other)
  Sender: FDA-Public Use
  Company Number: US-PFIZER INC-202101402950

PATIENT
  Age: 64 Year
  Sex: Male
  Weight: 157.4 kg

DRUGS (4)
  1. CHANTIX [Suspect]
     Active Substance: VARENICLINE TARTRATE
     Indication: Smoking cessation therapy
     Dosage: 1 MG, 2X/DAY(1MG HE BELIEVES, TWICE A DAY)
     Dates: end: 20210721
  2. CHANTIX [Suspect]
     Active Substance: VARENICLINE TARTRATE
     Dosage: 1 MG, DAILY
  3. ZOLOFT [Concomitant]
     Active Substance: SERTRALINE HYDROCHLORIDE
     Indication: Antidepressant therapy
     Dosage: 100 MG, 1X/DAY
  4. INSULIN NOS [Concomitant]
     Active Substance: INSULIN NOS
     Indication: Diabetes mellitus
     Dosage: 65 UNITS AT NIGHT

REACTIONS (4)
  - Dependence [Unknown]
  - Withdrawal syndrome [Unknown]
  - Hepatic steatosis [Unknown]
  - Viral infection [Unknown]

NARRATIVE: CASE EVENT DATE: 20200401
